FAERS Safety Report 4363817-8 (Version None)
Quarter: 2004Q2

REPORT INFORMATION
  Report Type: 
  Country: None (occurrence: None)
  Receive Date: 20040521
  Receipt Date: 20040422
  Transmission Date: 20050107
  Serious: No
  Sender: FDA-Public Use
  Company Number: CART-10333

PATIENT
  Age: 39 Year
  Sex: Male
  Weight: 83.9154 kg

DRUGS (1)
  1. CARTICEL [Suspect]
     Indication: ARTHROPATHY
     Dosage: 1 NA ONCE IS
     Dates: start: 20000920, end: 20000920

REACTIONS (1)
  - CHONDROPATHY [None]
